FAERS Safety Report 7419133-0 (Version None)
Quarter: 2011Q2

REPORT INFORMATION
  Report Type: 
  Country: None (occurrence: None)
  Receive Date: 20110415
  Receipt Date: 20110321
  Transmission Date: 20111010
  Serious: No
  Sender: FDA-Public Use
  Company Number: US-B.I. PHARMACEUTICALS,INC./RIDGEFIELD-2011-BP-08710BP

PATIENT
  Sex: Male

DRUGS (16)
  1. ASPIRIN [Concomitant]
     Indication: PROPHYLAXIS
     Dosage: 81 MG
     Route: 048
  2. FLUTICASONE [Concomitant]
     Indication: HYPERSENSITIVITY
     Route: 045
  3. PEPCID [Concomitant]
     Indication: ABDOMINAL DISCOMFORT
     Route: 048
  4. SINGULAIR [Concomitant]
     Indication: HYPERSENSITIVITY
     Dosage: 10 MG
     Route: 048
  5. METFORMIN HCL [Concomitant]
     Indication: DIABETES MELLITUS
     Dosage: 1700 MG
     Route: 048
  6. PRADAXA [Suspect]
     Indication: PROPHYLAXIS
     Dosage: 300 MG
     Route: 048
     Dates: start: 20110320
  7. ADVAIR HFA [Concomitant]
     Indication: EMPHYSEMA
     Route: 055
  8. DIOVAN [Concomitant]
     Indication: HYPERTENSION
     Dosage: 160 MG
     Route: 048
  9. METOPROLOL TARTRATE [Concomitant]
     Indication: HYPERTENSION
     Dosage: 50 MG
     Route: 048
  10. PRADAXA [Suspect]
     Indication: CEREBROVASCULAR ACCIDENT PROPHYLAXIS
  11. SPIRIVA [Concomitant]
     Indication: EMPHYSEMA
     Dosage: 18 MCG
     Route: 055
     Dates: start: 20090101
  12. VYTORIN [Concomitant]
     Indication: BLOOD CHOLESTEROL ABNORMAL
     Route: 048
  13. PROAIR HFA [Concomitant]
     Indication: EMPHYSEMA
     Route: 055
  14. LANTUS [Concomitant]
     Indication: DIABETES MELLITUS
     Dosage: 18 U
     Route: 058
  15. HYDROCODONE BITARTRATE [Concomitant]
     Indication: JOINT INJURY
     Route: 048
  16. FLECTOR [Concomitant]
     Indication: JOINT INJURY
     Route: 061

REACTIONS (5)
  - MUSCULOSKELETAL DISORDER [None]
  - BACK PAIN [None]
  - COUGH [None]
  - ASTHENIA [None]
  - FATIGUE [None]
